FAERS Safety Report 8711441 (Version 2)
Quarter: 2013Q2

REPORT INFORMATION
  Report Type: Spontaneous
  Country: US (occurrence: None)
  Receive Date: 20120418
  Receipt Date: 20120626
  Transmission Date: 20140414
  Serious: Yes (Other)
  Sender: FDA-Public Use
  Company Number: PHHY2011US34678

PATIENT
  Age: 53 Year
  Sex: Female

DRUGS (9)
  1. DIOVAN HCT [Suspect]
     Dosage: 1 OR 2 DF (160/12.5 MG), DAILY
  2. LAMICTAL [Concomitant]
  3. CYMBALTA [Concomitant]
  4. CUSTAR [Concomitant]
  5. LORTAB [Concomitant]
  6. SAMA [Concomitant]
  7. VALIUM [Concomitant]
  8. POTASSIUM (POTASSIUM) [Concomitant]
  9. ZORCOR [Concomitant]

REACTIONS (1)
  - BLOOD PRESSURE INADEQUATELY CONTROLLED [None]
